FAERS Safety Report 5316132-X (Version None)
Quarter: 2007Q2

REPORT INFORMATION
  Report Type: 
  Country: None (occurrence: None)
  Receive Date: 20070503
  Receipt Date: 20070424
  Transmission Date: 20071010
  Serious: Yes (Other)
  Sender: FDA-Public Use
  Company Number: JP-PFIZER INC-2007020595

PATIENT
  Sex: Female

DRUGS (3)
  1. AROMASIN [Suspect]
     Indication: BREAST CANCER
     Route: 048
     Dates: start: 20070131, end: 20070315
  2. AMOBAN [Concomitant]
     Route: 048
     Dates: start: 20061110
  3. VITAMEDIN CAPSULE [Concomitant]
     Route: 048

REACTIONS (1)
  - ERYTHEMA MULTIFORME [None]
